FAERS Safety Report 21293308 (Version 1)
Quarter: 2022Q3

REPORT INFORMATION
  Report Type: Spontaneous
  Country: IT (occurrence: IT)
  Receive Date: 20220905
  Receipt Date: 20220905
  Transmission Date: 20221027
  Serious: Yes (Hospitalization)
  Sender: FDA-Public Use
  Company Number: None

PATIENT
  Age: 20 Year
  Sex: Female

DRUGS (3)
  1. SERTRALINE [Suspect]
     Active Substance: SERTRALINE HYDROCHLORIDE
     Indication: Intentional self-injury
     Dosage: 600 MG / TOTAL
     Dates: start: 20220301, end: 20220301
  2. ARIPIPRAZOLE [Suspect]
     Active Substance: ARIPIPRAZOLE
     Indication: Intentional self-injury
     Dosage: 10 MG / TOTAL
     Dates: start: 20220301, end: 20220301
  3. XANAX [Concomitant]
     Active Substance: ALPRAZOLAM
     Dosage: 15GTT/SERA

REACTIONS (3)
  - Hypokinesia [Recovering/Resolving]
  - Drug abuse [Unknown]
  - Bradycardia [Recovering/Resolving]

NARRATIVE: CASE EVENT DATE: 20220301
